FAERS Safety Report 24464067 (Version 1)
Quarter: 2024Q4

REPORT INFORMATION
  Report Type: Report from Study
  Country: US (occurrence: US)
  Receive Date: 20241018
  Receipt Date: 20241018
  Transmission Date: 20250115
  Serious: No
  Sender: ROCHE
  Company Number: US-ROCHE-3485815

PATIENT
  Age: 70 Year
  Sex: Female
  Weight: 114.1 kg

DRUGS (6)
  1. XOLAIR [Suspect]
     Active Substance: OMALIZUMAB
     Indication: Asthma
     Route: 058
  2. XOLAIR [Suspect]
     Active Substance: OMALIZUMAB
  3. ASPIRIN [Concomitant]
     Active Substance: ASPIRIN
  4. ALBUTEROL [Concomitant]
     Active Substance: ALBUTEROL
  5. AZELASTINE [Concomitant]
     Active Substance: AZELASTINE
  6. CALCITRIOL [Concomitant]
     Active Substance: CALCITRIOL

REACTIONS (2)
  - Off label use [Unknown]
  - No adverse event [Unknown]
